FAERS Safety Report 9700245 (Version 2)
Quarter: 2014Q1

REPORT INFORMATION
  Report Type: Spontaneous
  Country: DE (occurrence: DE)
  Receive Date: 20131121
  Receipt Date: 20140120
  Transmission Date: 20141002
  Serious: Yes (Other)
  Sender: FDA-Public Use
  Company Number: DE-JNJFOC-20131111254

PATIENT
  Age: 36 Year
  Sex: Male
  Weight: 89.8 kg

DRUGS (4)
  1. XARELTO [Suspect]
     Indication: THROMBOSIS PROPHYLAXIS
     Route: 048
     Dates: start: 201212, end: 2013
  2. XARELTO [Suspect]
     Indication: DEEP VEIN THROMBOSIS
     Route: 048
     Dates: start: 201212, end: 2013
  3. POLAMIDON [Concomitant]
     Indication: DRUG DEPENDENCE
     Route: 048
     Dates: start: 200502
  4. DOXEPIN [Concomitant]
     Indication: DRUG WITHDRAWAL SYNDROME
     Route: 048

REACTIONS (6)
  - Nausea [Recovered/Resolved with Sequelae]
  - Haemorrhage [Recovered/Resolved with Sequelae]
  - Haematoma infection [Recovered/Resolved with Sequelae]
  - Limb discomfort [Recovered/Resolved with Sequelae]
  - Hyperkinesia [Recovered/Resolved with Sequelae]
  - Restless legs syndrome [Recovered/Resolved with Sequelae]
